FAERS Safety Report 7009027-7 (Version None)
Quarter: 2010Q3

REPORT INFORMATION
  Report Type: 
  Country: None (occurrence: None)
  Receive Date: 20100921
  Receipt Date: 20100914
  Transmission Date: 20110219
  Serious: Yes (Other)
  Sender: FDA-Public Use
  Company Number: 695960

PATIENT
  Age: 43 Year
  Sex: Male

DRUGS (3)
  1. PENTOSTATIN [Suspect]
     Indication: HAIRY CELL LEUKAEMIA
     Dosage: 4 MG/M^2 EVERY TWO WEEKS, INTRAVENOUS
     Route: 042
     Dates: start: 20070907
  2. TRIMETHOPRIM + SULFAMETHOXAZOLE [Concomitant]
  3. (DOLASETRON) [Concomitant]

REACTIONS (6)
  - ACQUIRED OESOPHAGEAL WEB [None]
  - DYSPEPSIA [None]
  - FATIGUE [None]
  - GASTROENTERITIS EOSINOPHILIC [None]
  - NO THERAPEUTIC RESPONSE [None]
  - PANCYTOPENIA [None]
